FAERS Safety Report 16382787 (Version 1)
Quarter: 2019Q2

REPORT INFORMATION
  Report Type: Spontaneous
  Country: SE (occurrence: SE)
  Receive Date: 20190603
  Receipt Date: 20190603
  Transmission Date: 20190711
  Serious: Yes (Other)
  Sender: FDA-Public Use
  Company Number: SE-009507513-1905SWE012488

PATIENT
  Age: 73 Year
  Sex: Male

DRUGS (9)
  1. NITROLINGUAL [Concomitant]
     Active Substance: NITROGLYCERIN
     Dosage: 0.4 MILLIGRAM/DOSE, 1-3 DOSE(S) AS NEEDED,
     Route: 060
     Dates: start: 20170621
  2. FINASTERIDE. [Concomitant]
     Active Substance: FINASTERIDE
     Dosage: 5 MILLIGRAM, QD
  3. FENTANYL. [Concomitant]
     Active Substance: FENTANYL
     Dosage: 12 MICROGRAM/HOUR, Q3D
     Route: 062
     Dates: start: 20170621
  4. OMEPRAZOLE. [Concomitant]
     Active Substance: OMEPRAZOLE
     Dosage: 20 MILLIGRAM, QD
     Dates: start: 20170622
  5. KEYTRUDA [Suspect]
     Active Substance: PEMBROLIZUMAB
     Indication: LUNG NEOPLASM MALIGNANT
     Dosage: 200 MILLIGRAM, Q3W
     Route: 042
     Dates: start: 20170628
  6. ALVEDON [Concomitant]
     Active Substance: ACETAMINOPHEN
     Dosage: 1-2 TABLETS, 1-4 TIMES DAILY
     Dates: start: 20170622
  7. NOVORAPID [Concomitant]
     Active Substance: INSULIN ASPART
     Dosage: ACCORDING TO SPECIAL PRESCRIPTION (STRENGTH: 100 UNITS/ML SOLUTION FOR INJECTION IN CARTRIDGE)
     Route: 058
     Dates: start: 20170621
  8. MOXALOLE [Concomitant]
     Dosage: 1 DOSAGE FORM, QD, FORMULATION: POWDER FOR ORAL SOLUTION IN SACHET
     Route: 048
     Dates: start: 20170621
  9. CLOPIDOGREL [Concomitant]
     Active Substance: CLOPIDOGREL BISULFATE
     Dosage: 75 MILLIGRAM, QD
     Dates: start: 20170622

REACTIONS (1)
  - Hypogonadism [Not Recovered/Not Resolved]

NARRATIVE: CASE EVENT DATE: 201706
